FAERS Safety Report 20327008 (Version 1)
Quarter: 2022Q1

REPORT INFORMATION
  Report Type: Spontaneous
  Country: US (occurrence: None)
  Receive Date: 20220111
  Receipt Date: 20220111
  Transmission Date: 20220423
  Serious: Yes (Hospitalization)
  Sender: FDA-Public Use
  Company Number: None

PATIENT
  Sex: Male

DRUGS (4)
  1. MYCOPHENOLIC ACID [Suspect]
     Active Substance: MYCOPHENOLIC ACID
     Indication: Organ transplant
     Dosage: TAKE 4 CAPSULES BY MOUTH EVERY 12 HOURS
     Route: 048
     Dates: start: 20211123
  2. PREDNISONE [Concomitant]
  3. TACROLIMUS [Concomitant]
  4. TACROLIMUS A [Concomitant]

REACTIONS (2)
  - Catheterisation cardiac [None]
  - Biopsy [None]
